FAERS Safety Report 7166914-7 (Version None)
Quarter: 2010Q4

REPORT INFORMATION
  Report Type: 
  Country: None (occurrence: None)
  Receive Date: 20101213
  Receipt Date: 20101213
  Transmission Date: 20110411
  Serious: Yes (Life-Threatening)
  Sender: FDA-Public Use
  Company Number: None

PATIENT
  Age: 31 Year
  Sex: Male
  Weight: 105.2345 kg

DRUGS (1)
  1. ZYPREXA [Suspect]
     Indication: PSYCHOTIC DISORDER
     Dosage: DAILY
     Dates: start: 20100308, end: 20101211

REACTIONS (6)
  - BLOOD TRIGLYCERIDES INCREASED [None]
  - FATIGUE [None]
  - HYPERSOMNIA [None]
  - OBESITY [None]
  - SKIN STRIAE [None]
  - WEIGHT INCREASED [None]
